FAERS Safety Report 9934061 (Version 1)
Quarter: 2014Q1

REPORT INFORMATION
  Report Type: Spontaneous
  Country: None (occurrence: US)
  Receive Date: 20140228
  Receipt Date: 20140228
  Transmission Date: 20141002
  Serious: No
  Sender: FDA-Public Use
  Company Number: -MYLANLABS-2013S1017945

PATIENT
  Sex: Male

DRUGS (1)
  1. METFORMIN HCL TABLETS [Suspect]
     Indication: BLOOD GLUCOSE ABNORMAL

REACTIONS (2)
  - Drug ineffective [Not Recovered/Not Resolved]
  - Blood glucose abnormal [Not Recovered/Not Resolved]
